FAERS Safety Report 4829931-5 (Version None)
Quarter: 2005Q4

REPORT INFORMATION
  Report Type: 
  Country: None (occurrence: None)
  Receive Date: 20051114
  Receipt Date: 20051102
  Transmission Date: 20060501
  Serious: Yes (Other)
  Sender: FDA-Public Use
  Company Number: 2005150677

PATIENT
  Age: 88 Year
  Sex: Female
  Weight: 62.5964 kg

DRUGS (6)
  1. NORVASC [Suspect]
     Indication: HYPERTENSION
     Dosage: 5 MG (5 MG, 1 IN 1 D)
  2. XALATAN [Suspect]
     Indication: GLAUCOMA
     Dosage: 1 DROP, AT NIGHT)
  3. PRINIVIL [Concomitant]
  4. ATENOLOL [Concomitant]
  5. IRON (IRON) [Concomitant]
  6. VITAMINS (VITAMINS) [Concomitant]

REACTIONS (5)
  - BACK DISORDER [None]
  - CARTILAGE INJURY [None]
  - GLAUCOMA [None]
  - PAIN [None]
  - WEIGHT DECREASED [None]
